FAERS Safety Report 25757963 (Version 2)
Quarter: 2025Q4

REPORT INFORMATION
  Report Type: Report from Study
  Country: EU (occurrence: EU)
  Receive Date: 20250903
  Receipt Date: 20251003
  Transmission Date: 20260118
  Serious: Yes (Hospitalization)
  Sender: ABBVIE
  Company Number: EU-ABBVIE-6442200

PATIENT
  Age: 76 Year
  Sex: Male

DRUGS (11)
  1. FOSCARBIDOPA\FOSLEVODOPA [Suspect]
     Active Substance: FOSCARBIDOPA\FOSLEVODOPA
     Indication: Parkinson^s disease
     Dosage: EXTRA DOSE:0.3, LOW RATE:0.24, HIGH RATE:0.39, BASE RATE:0.37, LOW DOSE:0.3?LAST ADMIN DATE: 2025
     Route: 058
     Dates: start: 20250708
  2. FOSCARBIDOPA\FOSLEVODOPA [Suspect]
     Active Substance: FOSCARBIDOPA\FOSLEVODOPA
     Dosage: EXTRA DOSE: 0.15, LOW RATE: 0.27, HIGH RATE: 0.29, BASE RATE: 0.27, LOADING DOSE: 0.3.?FIRST ADMI...
     Route: 058
  3. TAMSULOSIN HYDROCHLORIDE [Concomitant]
     Active Substance: TAMSULOSIN HYDROCHLORIDE
     Indication: Product used for unknown indication
  4. XADAGO [Concomitant]
     Active Substance: SAFINAMIDE MESYLATE
     Indication: Parkinson^s disease
  5. AMANTADINE HYDROCHLORIDE [Concomitant]
     Active Substance: AMANTADINE HYDROCHLORIDE
     Indication: Parkinson^s disease
  6. MELATONIN [Concomitant]
     Active Substance: MELATONIN
     Indication: Product used for unknown indication
  7. ESCITALOPRAM [Concomitant]
     Active Substance: ESCITALOPRAM OXALATE
     Indication: Product used for unknown indication
  8. MAGNESIUM [Concomitant]
     Active Substance: MAGNESIUM
     Indication: Product used for unknown indication
  9. Befact [Concomitant]
     Indication: Product used for unknown indication
     Dosage: DUO
  10. BENSERAZIDE\LEVODOPA [Concomitant]
     Active Substance: BENSERAZIDE\LEVODOPA
     Indication: Parkinson^s disease
  11. TOVIAZ [Concomitant]
     Active Substance: FESOTERODINE FUMARATE
     Indication: Parkinson^s disease

REACTIONS (10)
  - Pyrexia [Unknown]
  - Confusional state [Unknown]
  - Catheter site erythema [Not Recovered/Not Resolved]
  - Hyponatraemia [Recovered/Resolved]
  - Hallucination [Unknown]
  - Parkinsonian gait [Unknown]
  - Posture abnormal [Unknown]
  - Bradykinesia [Unknown]
  - Muscle rigidity [Unknown]
  - Therapeutic product effect incomplete [Unknown]

NARRATIVE: CASE EVENT DATE: 20250101
